FAERS Safety Report 7996691-9 (Version None)
Quarter: 2011Q4

REPORT INFORMATION
  Report Type: 
  Country: None (occurrence: None)
  Receive Date: 20111221
  Receipt Date: 20111212
  Transmission Date: 20120403
  Serious: Yes (Other)
  Sender: FDA-Public Use
  Company Number: US-BAYER-2011-063070

PATIENT
  Age: 19 Year
  Sex: Female
  Weight: 74 kg

DRUGS (20)
  1. DROSPIRENONE AND ETHINYL ESTRADIOL [Suspect]
     Indication: CONTRACEPTION
     Dosage: UNK
     Dates: start: 20080701, end: 20100701
  2. DROSPIRENONE AND ETHINYL ESTRADIOL [Suspect]
     Indication: PREMENSTRUAL SYNDROME
  3. CITALOPRAM [Concomitant]
     Indication: SUPPLEMENTATION THERAPY
     Dosage: 40 MG, UNK
     Dates: start: 20070501, end: 20110101
  4. FOLIC ACID [Concomitant]
     Indication: SUPPLEMENTATION THERAPY
     Dosage: 1 MG, UNK
     Dates: start: 20090301, end: 20100301
  5. YASMIN [Suspect]
     Indication: PREMENSTRUAL SYNDROME
  6. ZEGERID [Concomitant]
     Indication: GASTROOESOPHAGEAL REFLUX DISEASE
     Dosage: 40 MG, QD
     Route: 048
     Dates: start: 20080401, end: 20100601
  7. POLYTRIM [Concomitant]
     Dosage: UNK UNK, Q4HR
     Route: 047
     Dates: start: 20100201, end: 20100301
  8. DROSPIRENONE AND ETHINYL ESTRADIOL [Suspect]
     Indication: MENSTRUAL CYCLE MANAGEMENT
  9. LITHIUM CARBONATE [Concomitant]
     Indication: SUPPLEMENTATION THERAPY
     Dosage: 400 MG, HS
     Route: 048
     Dates: start: 20091001, end: 20100601
  10. SEROQUEL XR [Concomitant]
     Indication: SUPPLEMENTATION THERAPY
     Dosage: 400 MG, QD
     Route: 048
     Dates: start: 20090401, end: 20100601
  11. DEPAKOTE [Concomitant]
     Dosage: 200 MG, BID
     Route: 048
     Dates: start: 20100201, end: 20100301
  12. TRAZODONE HCL [Concomitant]
     Dosage: 100 MG, QD
     Route: 048
     Dates: start: 20100201, end: 20100301
  13. DROSPIRENONE AND ETHINYL ESTRADIOL [Suspect]
     Indication: ACNE
  14. ONDANSETRON [Concomitant]
     Indication: NAUSEA
     Dosage: 4 MG, TID
     Route: 048
     Dates: start: 20100221, end: 20100227
  15. IBUPROFEN [Concomitant]
     Dosage: UNK UNK, PRN
     Dates: start: 20010101
  16. DEXTRAMP-AMPHET ER [Concomitant]
     Dosage: 20 MG, BID
     Route: 048
     Dates: start: 20100207, end: 20100319
  17. YASMIN [Suspect]
     Indication: CONTRACEPTION
     Dosage: UNK
     Dates: start: 20060901, end: 20080701
  18. YASMIN [Suspect]
     Indication: ACNE
  19. YASMIN [Suspect]
     Indication: MENSTRUAL CYCLE MANAGEMENT
  20. DEXTRAMP-AMPHET ER [Concomitant]
     Indication: SUPPLEMENTATION THERAPY
     Dosage: 20 MG, BID
     Route: 048
     Dates: start: 20090501, end: 20100501

REACTIONS (3)
  - PAIN [None]
  - CHOLECYSTITIS [None]
  - INJURY [None]
